FAERS Safety Report 10334989 (Version 1)
Quarter: 2014Q3

REPORT INFORMATION
  Report Type: Spontaneous
  Country: US (occurrence: None)
  Receive Date: 20140722
  Receipt Date: 20140722
  Transmission Date: 20150326
  Serious: Yes (Other)
  Sender: FDA-Public Use
  Company Number: None

PATIENT
  Age: 07 Year
  Sex: Male
  Weight: 27.22 kg

DRUGS (5)
  1. VYVANSE [Suspect]
     Active Substance: LISDEXAMFETAMINE DIMESYLATE
     Indication: ATTENTION DEFICIT/HYPERACTIVITY DISORDER
     Dosage: 1 PILL ONCE PER DAY BY MOUTH
     Route: 048
     Dates: start: 20140201, end: 20140202
  2. METHYLPHENIDATE [Concomitant]
     Active Substance: METHYLPHENIDATE
  3. MULTIVITAMIN [Concomitant]
     Active Substance: VITAMINS
  4. LORADADINE [Concomitant]
  5. FLUTICASONE [Concomitant]
     Active Substance: FLUTICASONE\FLUTICASONE PROPIONATE

REACTIONS (3)
  - Cardiac disorder [None]
  - Loss of consciousness [None]
  - Convulsive threshold lowered [None]

NARRATIVE: CASE EVENT DATE: 20140202
